FAERS Safety Report 15238879 (Version 1)
Quarter: 2018Q3

REPORT INFORMATION
  Report Type: Spontaneous
  Country: US (occurrence: US)
  Receive Date: 20180710
  Receipt Date: 20180710
  Transmission Date: 20181010
  Serious: Yes (Death, Other)
  Sender: FDA-Public Use
  Company Number: None

PATIENT
  Age: 73 Year
  Sex: Male
  Weight: 81 kg

DRUGS (11)
  1. AMLODIPINE [Concomitant]
     Active Substance: AMLODIPINE BESYLATE
  2. DARZALEX [Concomitant]
     Active Substance: DARATUMUMAB
  3. PROMACTA [Suspect]
     Active Substance: ELTROMBOPAG OLAMINE
     Indication: IMMUNE THROMBOCYTOPENIC PURPURA
     Route: 048
     Dates: start: 20180329, end: 20180701
  4. ACYCLOVIR. [Concomitant]
     Active Substance: ACYCLOVIR
  5. GABAPENTIN. [Concomitant]
     Active Substance: GABAPENTIN
  6. ASPIRIN. [Concomitant]
     Active Substance: ASPIRIN
  7. OMEPRAZOLE. [Concomitant]
     Active Substance: OMEPRAZOLE
  8. DOXAZOSIN [Concomitant]
     Active Substance: DOXAZOSIN\DOXAZOSIN MESYLATE
  9. VENCLEXTA [Concomitant]
     Active Substance: VENETOCLAX
  10. MULTIVITAMINS [Concomitant]
     Active Substance: VITAMINS
  11. METOPROLOL. [Concomitant]
     Active Substance: METOPROLOL

REACTIONS (1)
  - Disease progression [None]
